FAERS Safety Report 6055774-3 (Version None)
Quarter: 2009Q1

REPORT INFORMATION
  Report Type: 
  Country: None (occurrence: None)
  Receive Date: 20090126
  Receipt Date: 20080930
  Transmission Date: 20090719
  Serious: Yes (Death)
  Sender: FDA-Public Use
  Company Number: 2009PL000013

PATIENT
  Age: 51 Year
  Sex: Female

DRUGS (3)
  1. AZATHIOPRINE [Suspect]
     Indication: RELAPSING-REMITTING MULTIPLE SCLEROSIS
     Dosage: 150 MG; QD;
     Dates: end: 19980101
  2. INTERFERON B [Concomitant]
  3. METHYLPREDNISOLONE [Concomitant]

REACTIONS (7)
  - ACUTE MYELOID LEUKAEMIA [None]
  - ANAEMIA HAEMOLYTIC AUTOIMMUNE [None]
  - CHROMOSOMAL DELETION [None]
  - MYELODYSPLASTIC SYNDROME [None]
  - PANCYTOPENIA [None]
  - SEPSIS [None]
  - SUBDURAL HAEMATOMA [None]
